FAERS Safety Report 4750812-X (Version None)
Quarter: 2005Q3

REPORT INFORMATION
  Report Type: 
  Country: None (occurrence: None)
  Receive Date: 20050822
  Receipt Date: 20050801
  Transmission Date: 20060218
  Serious: Yes (Hospitalization)
  Sender: FDA-Public Use
  Company Number: US_0502112854

PATIENT
  Age: 48 Year
  Sex: Female

DRUGS (33)
  1. ZYPREXA [Suspect]
     Indication: ANXIETY
     Dosage: 15 MG DAY
     Dates: start: 20010824, end: 20020822
  2. XANAX [Concomitant]
  3. ZOLOFT [Concomitant]
  4. AMBIEN [Concomitant]
  5. SERQUEL (QUETIAPINE FUMARATE) [Concomitant]
  6. DOXEPIN HCL [Concomitant]
  7. COZAAR [Concomitant]
  8. FUROSEMIDE [Concomitant]
  9. SPIRONOLACTONE [Concomitant]
  10. KCL (POTASSIUM CHLORIDE) [Concomitant]
  11. LIPITOR [Concomitant]
  12. ISOSORBIDE MONONITRATE [Concomitant]
  13. TOPROL-XL [Concomitant]
  14. NIASPAN [Concomitant]
  15. PREVACID [Concomitant]
  16. ACETYLSALICYLIC ACID SRT [Concomitant]
  17. NITROQUICK (GLYCERYL TRINITRATE) [Concomitant]
  18. DOC-Q-LACE (DOCUSATE SODIUM) [Concomitant]
  19. PROTONIX [Concomitant]
  20. CEPHALEXIN [Concomitant]
  21. APAP W/HYDROCODONE [Concomitant]
  22. WELLBUTRIN [Concomitant]
  23. COREG [Concomitant]
  24. ZOCOR [Concomitant]
  25. SEROQUEL [Concomitant]
  26. LORAZEPAM [Concomitant]
  27. CLONAZEPAM [Concomitant]
  28. AMOXICILLIN [Concomitant]
  29. HYDROMORPHONE HYDROCHLORIDE [Concomitant]
  30. VIOXX [Concomitant]
  31. PROPOXYPHENE HCL [Concomitant]
  32. MEPERIDINE [Concomitant]
  33. PROMETHAZINE [Concomitant]

REACTIONS (5)
  - ARRHYTHMIA [None]
  - BLOOD CHOLESTEROL ABNORMAL [None]
  - CHEST PAIN [None]
  - DIABETES MELLITUS [None]
  - WEIGHT INCREASED [None]
